FAERS Safety Report 10200458 (Version 1)
Quarter: 2014Q2

REPORT INFORMATION
  Report Type: Spontaneous
  Country: FR (occurrence: FR)
  Receive Date: 20140528
  Receipt Date: 20140528
  Transmission Date: 20141212
  Serious: Yes (Life-Threatening, Hospitalization, Disabling)
  Sender: FDA-Public Use
  Company Number: FR-US-EMD SERONO, INC.-7292897

PATIENT
  Age: 26 Year
  Sex: Female

DRUGS (4)
  1. OVITRELLE [Suspect]
     Indication: PRODUCT USED FOR UNKNOWN INDICATION
     Route: 058
     Dates: start: 20140128, end: 20140128
  2. PUREGON                            /01348901/ [Suspect]
     Indication: PRODUCT USED FOR UNKNOWN INDICATION
     Route: 058
     Dates: start: 20140117, end: 20140127
  3. ORGALUTRAN                         /01453701/ [Suspect]
     Indication: PRODUCT USED FOR UNKNOWN INDICATION
     Route: 058
     Dates: start: 20140123, end: 20140127
  4. LEVOTHYROX [Concomitant]
     Indication: PRODUCT USED FOR UNKNOWN INDICATION

REACTIONS (3)
  - Ischaemic stroke [Recovering/Resolving]
  - Ovarian hyperstimulation syndrome [Recovered/Resolved]
  - Venous thrombosis [Recovered/Resolved]
